FAERS Safety Report 22532353 (Version 2)
Quarter: 2023Q2

REPORT INFORMATION
  Report Type: Spontaneous
  Country: US (occurrence: US)
  Receive Date: 20230607
  Receipt Date: 20230614
  Transmission Date: 20230722
  Serious: Yes (Hospitalization)
  Sender: FDA-Public Use
  Company Number: US-KOREA IPSEN Pharma-2023-13205

PATIENT
  Sex: Female

DRUGS (3)
  1. DYSPORT [Suspect]
     Active Substance: ABOBOTULINUMTOXINA
     Indication: Skin wrinkling
     Route: 065
     Dates: start: 20230327, end: 20230327
  2. DYSPORT [Suspect]
     Active Substance: ABOBOTULINUMTOXINA
     Indication: Skin wrinkling
     Route: 065
     Dates: start: 2023, end: 2023
  3. DYSPORT [Suspect]
     Active Substance: ABOBOTULINUMTOXINA
     Indication: Off label use

REACTIONS (8)
  - Dizziness [Unknown]
  - Tinnitus [Unknown]
  - Headache [Unknown]
  - Nausea [Unknown]
  - Influenza like illness [Unknown]
  - Injection site mass [Unknown]
  - Illness [Unknown]
  - Off label use [Unknown]

NARRATIVE: CASE EVENT DATE: 20230327
